FAERS Safety Report 11484442 (Version 1)
Quarter: 2015Q3

REPORT INFORMATION
  Report Type: Spontaneous
  Country: US (occurrence: US)
  Receive Date: 20150903
  Receipt Date: 20150903
  Transmission Date: 20151125
  Serious: No
  Sender: FDA-Public Use
  Company Number: US-ELI_LILLY_AND_COMPANY-US201208000647

PATIENT
  Age: 54 Year
  Sex: Male

DRUGS (1)
  1. CYMBALTA [Suspect]
     Active Substance: DULOXETINE HYDROCHLORIDE
     Indication: SMOKING CESSATION THERAPY

REACTIONS (6)
  - Off label use [Unknown]
  - Insomnia [Unknown]
  - Vomiting [Unknown]
  - Intentional product misuse [Unknown]
  - Cystitis [Unknown]
  - Feeling abnormal [Unknown]
